FAERS Safety Report 8721642 (Version 3)
Quarter: 2014Q1

REPORT INFORMATION
  Report Type: Spontaneous
  Country: US (occurrence: US)
  Receive Date: 20120814
  Receipt Date: 20140117
  Transmission Date: 20141002
  Serious: Yes (Hospitalization)
  Sender: FDA-Public Use
  Company Number: US-BAYER-2012-080220

PATIENT
  Age: 31 Year
  Sex: Female
  Weight: 65.76 kg

DRUGS (7)
  1. YAZ [Suspect]
     Indication: CONTRACEPTION
     Dosage: UNK
     Dates: start: 2005, end: 2009
  2. YAZ [Suspect]
     Indication: ACNE
  3. YASMIN [Suspect]
     Indication: CONTRACEPTION
     Dosage: UNK
     Dates: start: 2005, end: 2009
  4. YASMIN [Suspect]
     Indication: ACNE
  5. ALBUTEROL [Concomitant]
     Indication: ASTHMA
  6. VITAMIN C [Concomitant]
     Dosage: ONE DAILY
     Route: 048
  7. CALCIUM [Concomitant]
     Dosage: 500 MG, ONCE A DAY
     Route: 048

REACTIONS (10)
  - Gallbladder injury [None]
  - Cholecystitis chronic [None]
  - Thyroid neoplasm [None]
  - Deep vein thrombosis [None]
  - Ovarian cyst [None]
  - Pain [None]
  - Injury [None]
  - Fear of disease [None]
  - Pain [None]
  - Pain in extremity [None]
